FAERS Safety Report 19193753 (Version 1)
Quarter: 2021Q2

REPORT INFORMATION
  Report Type: Spontaneous
  Country: GB (occurrence: GB)
  Receive Date: 20210429
  Receipt Date: 20210429
  Transmission Date: 20210717
  Serious: Yes (Hospitalization, Disabling, Other)
  Sender: FDA-Public Use
  Company Number: GB-TEVA-2021-GB-1905127

PATIENT
  Age: 24 Year
  Sex: Female
  Weight: 78.46 kg

DRUGS (7)
  1. ACICLOVIR [Concomitant]
     Active Substance: ACYCLOVIR
  2. CETIRIZINE HYDROCHLORIDE. [Concomitant]
     Active Substance: CETIRIZINE HYDROCHLORIDE
  3. FOLIC ACID. [Concomitant]
     Active Substance: FOLIC ACID
  4. METHOTREXATE. [Concomitant]
     Active Substance: METHOTREXATE
  5. CUTIVATE [Suspect]
     Active Substance: FLUTICASONE PROPIONATE
     Indication: ECZEMA
     Dosage: 2 DOSAGE FORMS DAILY; ON FACE
     Route: 061
     Dates: start: 20120301, end: 20190303
  6. HYDROCORTISONE. [Suspect]
     Active Substance: HYDROCORTISONE
     Indication: ECZEMA
     Dosage: 2 DOSAGE FORMS DAILY;
     Route: 061
     Dates: start: 20100201, end: 20200703
  7. BETNOVATE [Suspect]
     Active Substance: BETAMETHASONE
     Indication: ECZEMA
     Dosage: 2 DOSAGE FORMS DAILY;
     Route: 061
     Dates: start: 20110101, end: 20180303

REACTIONS (5)
  - Skin atrophy [Not Recovered/Not Resolved]
  - Medication error [Unknown]
  - Skin infection [Recovering/Resolving]
  - Steroid withdrawal syndrome [Unknown]
  - Skin weeping [Unknown]

NARRATIVE: CASE EVENT DATE: 20120302
